FAERS Safety Report 4409875-3 (Version None)
Quarter: 2004Q3

REPORT INFORMATION
  Report Type: 
  Country: None (occurrence: None)
  Receive Date: 20040726
  Receipt Date: 20040713
  Transmission Date: 20050211
  Serious: Yes (Death)
  Sender: FDA-Public Use
  Company Number: FR-JNJFOC-20040703264

PATIENT
  Sex: Female

DRUGS (1)
  1. REMICADE [Suspect]
     Dosage: 1 IN 1DAY INTRAVENOUS
     Route: 042
     Dates: start: 20020901, end: 20020901

REACTIONS (1)
  - TUBERCULOSIS [None]
